FAERS Safety Report 10178088 (Version 1)
Quarter: 2014Q2

REPORT INFORMATION
  Report Type: Spontaneous
  Country: US (occurrence: US)
  Receive Date: 20140518
  Receipt Date: 20140518
  Transmission Date: 20141212
  Serious: Yes (Hospitalization)
  Sender: FDA-Public Use
  Company Number: US-BRISTOL-MYERS SQUIBB COMPANY-20734695

PATIENT
  Age: 75 Year
  Sex: Male

DRUGS (14)
  1. ABILIFY [Suspect]
     Dosage: TABS 5MG INSTEAD OF 2MG
  2. GLIPIZIDE [Concomitant]
  3. GABAPENTIN [Concomitant]
  4. PRADAXA [Concomitant]
  5. LISINOPRIL [Concomitant]
  6. POTASSIUM CHLORIDE [Concomitant]
  7. FUROSEMIDE [Concomitant]
  8. CITALOPRAM [Concomitant]
  9. RANITIDINE [Concomitant]
  10. ATORVASTATIN [Concomitant]
  11. DOXAZOSIN [Concomitant]
  12. NOVOLOG [Concomitant]
  13. FENTANYL PATCH [Concomitant]
  14. OXYCODONE [Concomitant]

REACTIONS (4)
  - Incorrect dose administered [Unknown]
  - Agitation [None]
  - Confusional state [None]
  - Drug dispensing error [Unknown]
